FAERS Safety Report 6684312-7 (Version None)
Quarter: 2010Q2

REPORT INFORMATION
  Report Type: 
  Country: None (occurrence: None)
  Receive Date: 20100416
  Receipt Date: 20100330
  Transmission Date: 20101027
  Serious: No
  Sender: FDA-Public Use
  Company Number: US-B.I. PHARMACEUTICALS,INC./RIDGEFIELD-2010-BP-03112BP

PATIENT
  Sex: Female
  Weight: 45.36 kg

DRUGS (4)
  1. MIRAPEX [Suspect]
     Indication: PARKINSON'S DISEASE
     Dosage: 0.75 MG
     Route: 048
     Dates: end: 20100309
  2. TIMOLOL [Concomitant]
     Indication: GLAUCOMA
     Route: 031
  3. LUMIGAN [Concomitant]
     Indication: GLAUCOMA
     Route: 031
  4. AZOPT [Concomitant]
     Indication: GLAUCOMA
     Route: 031

REACTIONS (5)
  - FALL [None]
  - LACERATION [None]
  - LOSS OF CONSCIOUSNESS [None]
  - SUDDEN ONSET OF SLEEP [None]
  - TOOTH INJURY [None]
